FAERS Safety Report 8901841 (Version 1)
Quarter: 2012Q4

REPORT INFORMATION
  Report Type: Spontaneous
  Country: US (occurrence: None)
  Receive Date: 20121107
  Receipt Date: 20121107
  Transmission Date: 20130627
  Serious: Yes (Other)
  Sender: FDA-Public Use
  Company Number: FK201203294

PATIENT
  Age: 46 Year
  Sex: Female

DRUGS (3)
  1. OXALIPLATIN [Suspect]
     Indication: COLON CANCER
  2. FLUOROURACIL INJECTION, USP (FLUOROURACIL)(FLUOROURACIL) [Concomitant]
  3. FOLINIC ACID (FOLINIC ACID) [Concomitant]

REACTIONS (4)
  - Hepatocellular injury [None]
  - Ototoxicity [None]
  - Tinnitus [None]
  - Vertigo [None]
